FAERS Safety Report 9688301 (Version 1)
Quarter: 2013Q4

REPORT INFORMATION
  Report Type: Spontaneous
  Country: US (occurrence: US)
  Receive Date: 20131114
  Receipt Date: 20131114
  Transmission Date: 20140711
  Serious: Yes (Death)
  Sender: FDA-Public Use
  Company Number: US-UCBSA-102785

PATIENT
  Sex: Female

DRUGS (1)
  1. VIMPAT [Suspect]
     Route: 042

REACTIONS (1)
  - Device malfunction [Fatal]
